FAERS Safety Report 9436481 (Version 1)
Quarter: 2013Q3

REPORT INFORMATION
  Report Type: Report from Study
  Country: US (occurrence: US)
  Receive Date: 20130802
  Receipt Date: 20130802
  Transmission Date: 20140515
  Serious: Yes (Hospitalization)
  Sender: FDA-Public Use
  Company Number: US-ROCHE-1253470

PATIENT
  Age: 56 Year
  Sex: Female

DRUGS (2)
  1. LUCENTIS [Suspect]
     Indication: DIABETIC RETINAL OEDEMA
     Dosage: OU (BOTH EYES).
     Route: 050
  2. OFLOXACIN [Concomitant]
     Dosage: FOR 3 DAYS.
     Route: 065

REACTIONS (3)
  - Blood sodium decreased [Unknown]
  - Eye pain [Unknown]
  - Metamorphopsia [Unknown]
